FAERS Safety Report 12618769 (Version 1)
Quarter: 2016Q3

REPORT INFORMATION
  Report Type: Spontaneous
  Country: GB (occurrence: GB)
  Receive Date: 20160803
  Receipt Date: 20160803
  Transmission Date: 20161109
  Serious: Yes (Hospitalization)
  Sender: FDA-Public Use
  Company Number: GB-PFIZER INC-2016362440

PATIENT
  Age: 80 Year
  Sex: Female

DRUGS (9)
  1. AMLODIPINE BESILATE [Suspect]
     Active Substance: AMLODIPINE BESYLATE
     Dosage: UNK
  2. ENOXAPARIN [Concomitant]
     Active Substance: ENOXAPARIN
     Dosage: 60MG/0.6ML UNTIL INRWITHIN RANGE
     Route: 058
  3. WARFARIN [Concomitant]
     Active Substance: WARFARIN
     Indication: DEEP VEIN THROMBOSIS
     Dosage: 1 MG, AS PER INR BOOKLET
     Route: 048
  4. PREDNISOLONE. [Suspect]
     Active Substance: PREDNISOLONE
     Dosage: 10 MG, 1X/DAY EVERY MORNING OM
     Route: 048
     Dates: start: 20160520
  5. PREDNISOLONE. [Suspect]
     Active Substance: PREDNISOLONE
     Indication: RHEUMATOID ARTHRITIS
     Dosage: 15 MG, 1X/DAY EVERY MORNING
     Route: 048
  6. DIHYDROCODEINE [Concomitant]
     Active Substance: DIHYDROCODEINE
     Dosage: 30MG - 60MG THREE TIMES A DAY
     Route: 048
  7. PARACETAMOL [Concomitant]
     Active Substance: ACETAMINOPHEN
     Dosage: 1 G, 4X/DAY
     Route: 048
  8. FENBID [Concomitant]
     Active Substance: IBUPROFEN
     Dosage: UNK
     Route: 061
  9. LANSOPRAZOLE. [Concomitant]
     Active Substance: LANSOPRAZOLE
     Dosage: 30 MG, 1X/DAY
     Route: 048

REACTIONS (5)
  - Acute kidney injury [Recovered/Resolved]
  - Joint swelling [Unknown]
  - International normalised ratio increased [Recovered/Resolved]
  - Polyarthritis [Unknown]
  - Peripheral swelling [Unknown]
